FAERS Safety Report 10332219 (Version 1)
Quarter: 2014Q3

REPORT INFORMATION
  Report Type: Spontaneous
  Country: US (occurrence: US)
  Receive Date: 20140722
  Receipt Date: 20140722
  Transmission Date: 20150326
  Serious: Yes (Other)
  Sender: FDA-Public Use
  Company Number: US-GILEAD-2014-0108517

PATIENT
  Age: 54 Year
  Sex: Female

DRUGS (2)
  1. RIBASPHERE RIBAPAK [Suspect]
     Active Substance: RIBAVIRIN
     Indication: HEPATITIS C
     Dosage: 1000 MG, QD
     Route: 048
     Dates: start: 20140607
  2. SOVALDI [Suspect]
     Active Substance: SOFOSBUVIR
     Indication: HEPATITIS C
     Dosage: 400 MG, QD
     Route: 048
     Dates: start: 20140607

REACTIONS (13)
  - Sluggishness [Unknown]
  - Condition aggravated [Unknown]
  - Headache [Unknown]
  - Mental impairment [Unknown]
  - Hot flush [Unknown]
  - Apathy [Unknown]
  - Somnolence [Unknown]
  - Abdominal discomfort [Unknown]
  - Painful defaecation [Unknown]
  - Memory impairment [Unknown]
  - Anxiety [Unknown]
  - Fatigue [Unknown]
  - Irritability [Unknown]

NARRATIVE: CASE EVENT DATE: 201406
